FAERS Safety Report 12415383 (Version 4)
Quarter: 2016Q4

REPORT INFORMATION
  Report Type: Spontaneous
  Country: US (occurrence: US)
  Receive Date: 20160530
  Receipt Date: 20161123
  Transmission Date: 20170207
  Serious: No
  Sender: FDA-Public Use
  Company Number: US-PFIZER INC-2016274930

PATIENT
  Age: 52 Year
  Sex: Female

DRUGS (1)
  1. XELJANZ [Suspect]
     Active Substance: TOFACITINIB CITRATE
     Indication: RHEUMATOID ARTHRITIS
     Dosage: 5 MG, 2X/DAY
     Route: 048

REACTIONS (14)
  - Condition aggravated [Unknown]
  - Productive cough [Unknown]
  - Drug effect incomplete [Unknown]
  - Cough [Unknown]
  - Arthralgia [Unknown]
  - Joint stiffness [Unknown]
  - Tremor [Unknown]
  - Headache [Unknown]
  - Peripheral swelling [Unknown]
  - Sputum discoloured [Unknown]
  - Pain [Unknown]
  - Pain of skin [Unknown]
  - Joint swelling [Unknown]
  - Pain in extremity [Unknown]
